FAERS Safety Report 19579928 (Version 1)
Quarter: 2021Q3

REPORT INFORMATION
  Report Type: Spontaneous
  Country: AU (occurrence: AU)
  Receive Date: 20210720
  Receipt Date: 20210720
  Transmission Date: 20211014
  Serious: Yes (Other)
  Sender: FDA-Public Use
  Company Number: AU-GENERIC HEALTH PTY. LTD.-2021-12205

PATIENT
  Age: 30 Year
  Sex: Female

DRUGS (3)
  1. OXYCODONE [Suspect]
     Active Substance: OXYCODONE
     Indication: PROCTALGIA
     Dosage: 5 MILLIGRAM
     Route: 065
  2. OXYTOCIN. [Suspect]
     Active Substance: OXYTOCIN
     Indication: LABOUR AUGMENTATION
     Dosage: UNK
     Route: 065
  3. MORPHINE [Suspect]
     Active Substance: MORPHINE
     Indication: PROCTALGIA
     Dosage: 10 MILLIGRAM
     Route: 058

REACTIONS (4)
  - Maternal exposure during delivery [Unknown]
  - Bradycardia foetal [Unknown]
  - Drug ineffective [Unknown]
  - Normal newborn [Unknown]
